FAERS Safety Report 8940792 (Version 1)
Quarter: 2012Q4

REPORT INFORMATION
  Report Type: 
  Country: US (occurrence: US)
  Receive Date: 20121203
  Receipt Date: 20121203
  Transmission Date: 20130627
  Serious: No
  Sender: FDA-Public Use
  Company Number: US-VERTEX PHARMACEUTICALS INC.-2012-025447

PATIENT
  Age: 56 None
  Sex: Male
  Weight: 117 kg

DRUGS (4)
  1. INCIVEK [Suspect]
     Indication: HEPATITIS C
     Dosage: 750 mg, tid
     Route: 048
     Dates: start: 20121010
  2. PEGASYS [Suspect]
     Indication: HEPATITIS C
     Dosage: 180 ?g, qw
     Route: 058
     Dates: start: 20121010
  3. RIBAPAK [Suspect]
     Indication: HEPATITIS C
     Dosage: 600 mg, bid
     Route: 048
     Dates: start: 20121010
  4. RIBAPAK [Suspect]
     Dosage: 0.5 DF, qd
     Route: 048

REACTIONS (14)
  - Pollakiuria [Not Recovered/Not Resolved]
  - Weight increased [Not Recovered/Not Resolved]
  - Dizziness [Not Recovered/Not Resolved]
  - Stress [Not Recovered/Not Resolved]
  - Disturbance in sexual arousal [Recovered/Resolved]
  - Headache [Not Recovered/Not Resolved]
  - Agitation [Not Recovered/Not Resolved]
  - Logorrhoea [Not Recovered/Not Resolved]
  - Disturbance in attention [Not Recovered/Not Resolved]
  - Abdominal distension [Not Recovered/Not Resolved]
  - Fatigue [Not Recovered/Not Resolved]
  - Red blood cell count decreased [Not Recovered/Not Resolved]
  - Anal pruritus [Not Recovered/Not Resolved]
  - Pruritus generalised [Not Recovered/Not Resolved]
